FAERS Safety Report 8607334-5 (Version None)
Quarter: 2012Q3

REPORT INFORMATION
  Report Type: 
  Country: None (occurrence: None)
  Receive Date: 20120821
  Receipt Date: 20120815
  Transmission Date: 20120928
  Serious: No
  Sender: FDA-Public Use
  Company Number: US-PFIZER INC-2012200406

PATIENT
  Age: 53 Year
  Sex: Female
  Weight: 53.515 kg

DRUGS (2)
  1. PREMPRO [Suspect]
     Indication: HOT FLUSH
     Dosage: 0.625/2.5 MG, ONCE DAILY
     Route: 048
     Dates: start: 20120101
  2. PREMPRO [Suspect]
     Indication: MENOPAUSAL SYMPTOMS
     Dosage: 0.45/1.5 MG, ONCE DAILY
     Route: 048
     Dates: start: 20120301, end: 20120101

REACTIONS (4)
  - FEELING ABNORMAL [None]
  - DRUG INEFFECTIVE [None]
  - ASTHENIA [None]
  - SLEEP DISORDER [None]
